FAERS Safety Report 18724170 (Version 1)
Quarter: 2021Q1

REPORT INFORMATION
  Report Type: Spontaneous
  Country: US (occurrence: US)
  Receive Date: 20210111
  Receipt Date: 20210111
  Transmission Date: 20210419
  Serious: Yes (Death)
  Sender: FDA-Public Use
  Company Number: US-ASTRAZENECA-2021A002976

PATIENT
  Age: 26944 Day
  Sex: Female

DRUGS (1)
  1. FASENRA [Suspect]
     Active Substance: BENRALIZUMAB
     Indication: ASTHMA
     Dosage: ONE INJECTION EVERY 4 WEEKS FOR THE FIRST THREE DOSES, THEN EVERY 8 WEEKS THEREAFTER30MG/ML EVER...
     Route: 058
     Dates: start: 20191011

REACTIONS (1)
  - Retroperitoneal haemorrhage [Fatal]

NARRATIVE: CASE EVENT DATE: 20201111
